FAERS Safety Report 25512454 (Version 1)
Quarter: 2025Q3

REPORT INFORMATION
  Report Type: Report from Study
  Country: CA (occurrence: CA)
  Receive Date: 20250703
  Receipt Date: 20250703
  Transmission Date: 20251020
  Serious: Yes (Hospitalization)
  Sender: TEVA
  Company Number: CA-TEVA-VS-3345731

PATIENT
  Age: 74 Year
  Sex: Female
  Weight: 97 kg

DRUGS (7)
  1. PREDNISONE [Suspect]
     Active Substance: PREDNISONE
     Indication: Product used for unknown indication
     Route: 065
  2. IRBESARTAN [Concomitant]
     Active Substance: IRBESARTAN
     Indication: Product used for unknown indication
     Route: 065
  3. BUDESONIDE\FORMOTEROL FUMARATE [Concomitant]
     Active Substance: BUDESONIDE\FORMOTEROL FUMARATE
     Indication: Product used for unknown indication
     Route: 065
  4. ROSUVASTATIN CALCIUM [Concomitant]
     Active Substance: ROSUVASTATIN CALCIUM
     Indication: Product used for unknown indication
     Route: 065
  5. PANTOPRAZOLE MAGNESIUM [Concomitant]
     Active Substance: PANTOPRAZOLE MAGNESIUM
     Indication: Product used for unknown indication
     Route: 065
  6. ACTEMRA [Suspect]
     Active Substance: TOCILIZUMAB
     Indication: Rheumatoid arthritis
     Route: 058
  7. ACTEMRA [Suspect]
     Active Substance: TOCILIZUMAB
     Indication: Rheumatoid arthritis
     Route: 058

REACTIONS (15)
  - Interstitial lung disease [Recovering/Resolving]
  - Arthralgia [Recovering/Resolving]
  - Secondary thrombocytosis [Recovering/Resolving]
  - Polyarthritis [Recovering/Resolving]
  - Grip strength decreased [Recovering/Resolving]
  - Drug intolerance [Recovering/Resolving]
  - Rales [Recovering/Resolving]
  - Vertebral foraminal stenosis [Recovering/Resolving]
  - Joint swelling [Recovering/Resolving]
  - Hip arthroplasty [Recovering/Resolving]
  - Spinal osteoarthritis [Recovering/Resolving]
  - Intervertebral disc degeneration [Recovering/Resolving]
  - Pulmonary function test abnormal [Recovering/Resolving]
  - Therapeutic product effect decreased [Recovering/Resolving]
  - Limb discomfort [Recovering/Resolving]
